FAERS Safety Report 12201455 (Version 1)
Quarter: 2016Q1

REPORT INFORMATION
  Report Type: Spontaneous
  Country: US (occurrence: US)
  Receive Date: 20160322
  Receipt Date: 20160322
  Transmission Date: 20160526
  Serious: No
  Sender: FDA-Public Use
  Company Number: US-SA-2015SA039908

PATIENT
  Age: 57 Year
  Sex: Female

DRUGS (1)
  1. NASACORT ALLERGY 24HR [Suspect]
     Active Substance: TRIAMCINOLONE ACETONIDE
     Dosage: DOSAGE: 1 SPRAY/NOSTRIL QD
     Route: 045
     Dates: start: 20150323, end: 20150324

REACTIONS (3)
  - Oral discomfort [Unknown]
  - Dry mouth [Unknown]
  - Throat irritation [Unknown]
